FAERS Safety Report 20143698 (Version 1)
Quarter: 2021Q4

REPORT INFORMATION
  Report Type: Spontaneous
  Country: US (occurrence: US)
  Receive Date: 20211203
  Receipt Date: 20211203
  Transmission Date: 20220303
  Serious: Yes (Other)
  Sender: FDA-Public Use
  Company Number: US-GLAXOSMITHKLINE-US2021GSK248217

PATIENT
  Sex: Male

DRUGS (2)
  1. ZANTAC [Suspect]
     Active Substance: RANITIDINE HYDROCHLORIDE
     Indication: Dyspepsia
     Dosage: OCCASIONAL|LOWEST MG FIRST FEW YEARS, THEN HIGHEST UNTIL 2020|OVER THE COUNTER
     Route: 065
     Dates: start: 197001, end: 202001
  2. ZANTAC [Suspect]
     Active Substance: RANITIDINE HYDROCHLORIDE
     Indication: Dyspepsia
     Dosage: OCCASIONAL|LOWEST MG FIRST FEW YEARS, THEN HIGHEST UNTIL 2020|OVER THE COUNTER
     Route: 065
     Dates: start: 197001, end: 202001

REACTIONS (1)
  - Prostate cancer [Unknown]
